FAERS Safety Report 23371951 (Version 1)
Quarter: 2024Q1

REPORT INFORMATION
  Report Type: Spontaneous
  Country: US (occurrence: None)
  Receive Date: 20240105
  Receipt Date: 20240105
  Transmission Date: 20240410
  Serious: Yes (Hospitalization)
  Sender: FDA-Public Use
  Company Number: None

PATIENT

DRUGS (2)
  1. CAFFEINE CITRATE [Suspect]
     Active Substance: CAFFEINE CITRATE
  2. CAFFEINE CITRATE [Suspect]
     Active Substance: CAFFEINE CITRATE
     Route: 048

REACTIONS (4)
  - Intercepted product selection error [None]
  - Product packaging confusion [None]
  - Product name confusion [None]
  - Product name confusion [None]
